FAERS Safety Report 4627883-4 (Version None)
Quarter: 2005Q2

REPORT INFORMATION
  Report Type: 
  Country: None (occurrence: None)
  Receive Date: 20050404
  Receipt Date: 20050404
  Transmission Date: 20051028
  Serious: Yes (Life-Threatening, Hospitalization)
  Sender: FDA-Public Use
  Company Number: None

PATIENT
  Age: 78 Year
  Sex: Male
  Weight: 68.9467 kg

DRUGS (2)
  1. ENOXAPARIN SODIUM [Suspect]
     Indication: ATRIAL FIBRILLATION
     Dosage: 40MG ONCE DAILY SUBCUTANEOUS
     Route: 058
     Dates: start: 20050129, end: 20050205
  2. ENOXAPARIN SODIUM [Suspect]
     Dosage: 80MG TWICE DAILY SUBCUTANEOUS
     Route: 058

REACTIONS (3)
  - ANORECTAL DISORDER [None]
  - HAEMATOMA [None]
  - LOWER GASTROINTESTINAL HAEMORRHAGE [None]
